FAERS Safety Report 21081646 (Version 2)
Quarter: 2022Q3

REPORT INFORMATION
  Report Type: Spontaneous
  Country: FR (occurrence: FR)
  Receive Date: 20220714
  Receipt Date: 20220914
  Transmission Date: 20221027
  Serious: Yes (Hospitalization, Other)
  Sender: FDA-Public Use
  Company Number: FR-SA-SAC20220711000211

PATIENT
  Age: 25 Year
  Weight: 85 kg

DRUGS (14)
  1. DUPIXENT [Suspect]
     Active Substance: DUPILUMAB
     Dosage: 1 DF, QOW
     Route: 058
     Dates: start: 20220224
  2. DUPIXENT [Suspect]
     Active Substance: DUPILUMAB
     Dosage: 1 DF, QOW
     Route: 058
     Dates: start: 20220314
  3. PREDNISONE [Concomitant]
     Active Substance: PREDNISONE
     Dosage: 80 MG, 1X, INTERVAL: 1 DAY
     Route: 048
     Dates: start: 20220314, end: 20220321
  4. ALPRAZOLAM [Concomitant]
     Active Substance: ALPRAZOLAM
     Dosage: 50 MG, INTERVAL: 1 DAY, INTRAVENOUS
     Dates: start: 20220314, end: 20220314
  5. IPRATROPIUM BROMIDE [Concomitant]
     Active Substance: IPRATROPIUM BROMIDE
     Dosage: UNK, 1X, INTERVAL: 1 DAY
     Route: 055
     Dates: start: 20220314, end: 20220321
  6. MAGNESIUM SULFATE ANHYDROUS [Concomitant]
     Active Substance: MAGNESIUM SULFATE ANHYDROUS
     Dosage: 2 G, 1X,  INTERVAL: 1 DAY
     Route: 055
     Dates: start: 20220314, end: 20220314
  7. TERBUTALINE SULFATE [Concomitant]
     Active Substance: TERBUTALINE SULFATE
     Dosage: UNK, 1X,  INTERVAL: 1 DAY
     Route: 055
     Dates: start: 20220314, end: 20220314
  8. SERETIDE [Concomitant]
     Active Substance: FLUTICASONE PROPIONATE\SALMETEROL XINAFOATE
     Dosage: 1-0-1
  9. FLUTICASONE FUROATE [Concomitant]
     Active Substance: FLUTICASONE FUROATE
     Dosage: 2PULV X2/D
  10. EBASTINE [Concomitant]
     Active Substance: EBASTINE
     Dosage: 1/D
  11. ALBUTEROL SULFATE [Concomitant]
     Active Substance: ALBUTEROL SULFATE
     Dosage: UNK
  12. OMEPRAZOLE [Concomitant]
     Active Substance: OMEPRAZOLE
     Dosage: 1 TABLET DAILY IF NEEDED
  13. SINGULAIR [Concomitant]
     Active Substance: MONTELUKAST SODIUM
     Dosage: 1/D
  14. SOLU-MEDROL [Concomitant]
     Active Substance: METHYLPREDNISOLONE SODIUM SUCCINATE
     Dosage: UNK

REACTIONS (8)
  - Injection site reaction [Recovered/Resolved]
  - Injection site erythema [Recovered/Resolved]
  - Injection site oedema [Recovered/Resolved]
  - Injection site pruritus [Recovered/Resolved]
  - Acute respiratory distress syndrome [Recovered/Resolved]
  - Asthma [Recovered/Resolved]
  - Wheezing [Recovered/Resolved]
  - Rash pruritic [Recovered/Resolved]

NARRATIVE: CASE EVENT DATE: 20220224
